FAERS Safety Report 4684501-7 (Version None)
Quarter: 2005Q2

REPORT INFORMATION
  Report Type: 
  Country: None (occurrence: None)
  Receive Date: 20050603
  Receipt Date: 20050519
  Transmission Date: 20051028
  Serious: Yes (Other)
  Sender: FDA-Public Use
  Company Number: 2005BI005103

PATIENT
  Age: 53 Year
  Sex: Female
  Weight: 88.4514 kg

DRUGS (2)
  1. AVONEX [Suspect]
     Indication: MULTIPLE SCLEROSIS
     Dosage: 30 UG;QW;IM
     Route: 030
     Dates: start: 19990121, end: 20030101
  2. AVONEX [Suspect]
     Indication: MULTIPLE SCLEROSIS
     Dosage: 30 UG;QW;IM
     Route: 030
     Dates: start: 20030101

REACTIONS (8)
  - ASTHMA [None]
  - BRAIN STEM SYNDROME [None]
  - BRONCHITIS [None]
  - CEREBROVASCULAR ACCIDENT [None]
  - CONDITION AGGRAVATED [None]
  - HYPERTENSION [None]
  - MULTIPLE SCLEROSIS [None]
  - SINUSITIS [None]
